FAERS Safety Report 9424410 (Version 1)
Quarter: 2013Q3

REPORT INFORMATION
  Report Type: Spontaneous
  Country: DE (occurrence: DE)
  Receive Date: 20130729
  Receipt Date: 20130729
  Transmission Date: 20140515
  Serious: Yes (Hospitalization)
  Sender: FDA-Public Use
  Company Number: DE-JNJFOC-20130714587

PATIENT
  Age: 84 Year
  Sex: Female
  Weight: 69.84 kg

DRUGS (4)
  1. XARELTO [Suspect]
     Indication: ATRIAL FIBRILLATION
     Route: 048
  2. XARELTO [Suspect]
     Indication: CEREBROVASCULAR ACCIDENT PROPHYLAXIS
     Route: 048
  3. PANTOPRAZOLE [Concomitant]
     Route: 065
  4. TORASEMID [Concomitant]
     Route: 065

REACTIONS (1)
  - Anaemia [Recovered/Resolved]
